FAERS Safety Report 7422745-1 (Version None)
Quarter: 2011Q2

REPORT INFORMATION
  Report Type: 
  Country: None (occurrence: None)
  Receive Date: 20110419
  Receipt Date: 20110407
  Transmission Date: 20111010
  Serious: Yes (Other)
  Sender: FDA-Public Use
  Company Number: US-JNJFOC-20110202906

PATIENT
  Sex: Female
  Weight: 52.16 kg

DRUGS (10)
  1. SORIATANE [Concomitant]
  2. DOXEPIN [Concomitant]
  3. ATENOLOL [Concomitant]
  4. NITROSTAT [Concomitant]
     Route: 060
  5. STELARA [Suspect]
     Indication: PSORIASIS
     Dosage: TOTAL OF 5 INJECTIONS.
     Route: 058
  6. EFFIENT [Concomitant]
  7. LISINOPRIL [Concomitant]
  8. PRAVASTATIN [Concomitant]
  9. PRAMOSONE [Concomitant]
     Route: 061
  10. LIDEX [Concomitant]

REACTIONS (6)
  - CEREBRAL HAEMORRHAGE [None]
  - ARTERIAL OCCLUSIVE DISEASE [None]
  - PSORIASIS [None]
  - MYOCARDIAL INFARCTION [None]
  - GAIT DISTURBANCE [None]
  - ISCHAEMIC STROKE [None]
